FAERS Safety Report 14788987 (Version 1)
Quarter: 2018Q2

REPORT INFORMATION
  Report Type: Spontaneous
  Country: AU (occurrence: AU)
  Receive Date: 20180423
  Receipt Date: 20180423
  Transmission Date: 20180711
  Serious: Yes (Other)
  Sender: FDA-Public Use
  Company Number: AU-CONCORDIA PHARMACEUTICALS INC.-GSH201804-001336

PATIENT
  Age: 56 Year
  Sex: Male

DRUGS (1)
  1. TRANYLCYPROMINE [Suspect]
     Active Substance: TRANYLCYPROMINE

REACTIONS (4)
  - Hypertension [Unknown]
  - Bradycardia [Unknown]
  - Haemorrhage intracranial [Unknown]
  - Loss of consciousness [Unknown]
